FAERS Safety Report 15361854 (Version 1)
Quarter: 2018Q3

REPORT INFORMATION
  Report Type: Report from Study
  Country: US (occurrence: US)
  Receive Date: 20180907
  Receipt Date: 20180907
  Transmission Date: 20181010
  Serious: Yes (Other)
  Sender: FDA-Public Use
  Company Number: US-UCBSA-2018036947

PATIENT
  Age: 20 Year
  Sex: Female

DRUGS (5)
  1. LEVETIRACETAM. [Suspect]
     Active Substance: LEVETIRACETAM
     Indication: SEIZURE
     Dosage: UNK
  2. DEPAKOTE [Suspect]
     Active Substance: DIVALPROEX SODIUM
     Indication: SEIZURE
     Dosage: UNK
  3. TOPAMAX [Suspect]
     Active Substance: TOPIRAMATE
     Indication: SEIZURE
     Dosage: UNK
  4. TRILEPTAL [Suspect]
     Active Substance: OXCARBAZEPINE
     Indication: SEIZURE
     Dosage: UNK
  5. LAMICTAL [Suspect]
     Active Substance: LAMOTRIGINE
     Indication: SEIZURE
     Dosage: UNK

REACTIONS (15)
  - Somnolence [Unknown]
  - Balance disorder [Unknown]
  - Migraine [Unknown]
  - Weight increased [Unknown]
  - Generalised tonic-clonic seizure [Unknown]
  - Weight decreased [Unknown]
  - Confusional state [Unknown]
  - Seizure [Unknown]
  - Bradyphrenia [Unknown]
  - Clumsiness [Unknown]
  - Loss of personal independence in daily activities [Unknown]
  - Cerebrovascular accident [Unknown]
  - Fatigue [Unknown]
  - Drug ineffective [Unknown]
  - Memory impairment [Unknown]
